FAERS Safety Report 7348602-7 (Version None)
Quarter: 2011Q1

REPORT INFORMATION
  Report Type: 
  Country: None (occurrence: None)
  Receive Date: 20110314
  Receipt Date: 20110303
  Transmission Date: 20110831
  Serious: No
  Sender: FDA-Public Use
  Company Number: US-BIOGENIDEC-2010BI027545

PATIENT
  Sex: Female

DRUGS (1)
  1. TYSABRI [Suspect]
     Indication: MULTIPLE SCLEROSIS
     Route: 042
     Dates: start: 20090806, end: 20100621

REACTIONS (6)
  - COGNITIVE DISORDER [None]
  - BALANCE DISORDER [None]
  - DRUG INEFFECTIVE [None]
  - SPEECH DISORDER [None]
  - DIZZINESS [None]
  - MULTIPLE SCLEROSIS [None]
